FAERS Safety Report 8471023-0 (Version None)
Quarter: 2012Q2

REPORT INFORMATION
  Report Type: 
  Country: None (occurrence: None)
  Receive Date: 20120627
  Receipt Date: 20120622
  Transmission Date: 20120825
  Serious: Yes (Other)
  Sender: FDA-Public Use
  Company Number: US-PFIZER INC-2012151116

PATIENT
  Sex: Female
  Weight: 102.04 kg

DRUGS (5)
  1. ENALAPRIL [Concomitant]
     Indication: HYPERTENSION
     Dosage: UNK, DAILY
  2. AZITHROMYCIN [Suspect]
     Indication: SINUS DISORDER
     Dosage: 250 MG, 1X/DAY
     Dates: start: 20120619, end: 20120622
  3. AZITHROMYCIN [Suspect]
     Indication: DYSPHONIA
  4. PROTONIX [Concomitant]
     Indication: GASTROOESOPHAGEAL REFLUX DISEASE
     Dosage: UNK , DAILY
  5. TOPROL-XL [Concomitant]
     Indication: HYPERTENSION
     Dosage: UNK,DAILY

REACTIONS (5)
  - HAEMATOCHEZIA [None]
  - TINNITUS [None]
  - DIARRHOEA [None]
  - HEADACHE [None]
  - ABDOMINAL PAIN UPPER [None]
